FAERS Safety Report 4697032-5 (Version None)
Quarter: 2005Q2

REPORT INFORMATION
  Report Type: 
  Country: None (occurrence: None)
  Receive Date: 20050620
  Receipt Date: 20050427
  Transmission Date: 20051028
  Serious: No
  Sender: FDA-Public Use
  Company Number: US-YAMANOUCHI-YPA20050224

PATIENT
  Age: 93 Year
  Sex: Female

DRUGS (10)
  1. VESICARE [Suspect]
     Dosage: 5 MG QD PO
     Route: 048
     Dates: start: 20050101
  2. AXID [Concomitant]
  3. ALPHAGAN [Concomitant]
  4. XALATAN [Concomitant]
  5. PREDNISOLONE [Concomitant]
  6. MULTI-VITAMINS [Concomitant]
  7. CALCIUM GLUCONATE [Concomitant]
  8. CHONDROITIN AND GLUCOSAMINE [Concomitant]
  9. ASPIRIN [Concomitant]
  10. VITAMIN B COMPLEX CAP [Concomitant]

REACTIONS (2)
  - AMNESIA [None]
  - CONFUSIONAL STATE [None]
